FAERS Safety Report 11634536 (Version 3)
Quarter: 2015Q4

REPORT INFORMATION
  Report Type: Report from Study
  Country: FR (occurrence: FR)
  Receive Date: 20151015
  Receipt Date: 20151126
  Transmission Date: 20160304
  Serious: Yes (Hospitalization, Other)
  Sender: FDA-Public Use
  Company Number: FR-BRISTOL-MYERS SQUIBB COMPANY-BMS-2015-057815

PATIENT
  Age: 70 Year
  Sex: Female
  Weight: 51 kg

DRUGS (1)
  1. NIVOLUMAB [Suspect]
     Active Substance: NIVOLUMAB
     Indication: NON-SMALL CELL LUNG CANCER
     Dosage: 3 MG/KG, UNK
     Route: 065
     Dates: start: 20150620, end: 20150930

REACTIONS (13)
  - Blood alkaline phosphatase abnormal [Unknown]
  - Malignant neoplasm progression [Not Recovered/Not Resolved]
  - Platelet disorder [Recovered/Resolved]
  - Creatinine renal clearance abnormal [Unknown]
  - Haemoglobin abnormal [Unknown]
  - Neutrophil count abnormal [Recovered/Resolved]
  - Abdominal cavity drainage [Not Recovered/Not Resolved]
  - Thyroxine free abnormal [Unknown]
  - Aspartate aminotransferase abnormal [Unknown]
  - Blood chloride decreased [Unknown]
  - Blood bicarbonate increased [Unknown]
  - Lymphocyte count abnormal [Unknown]
  - Blood thyroid stimulating hormone increased [Unknown]

NARRATIVE: CASE EVENT DATE: 20150701
